FAERS Safety Report 19745500 (Version 1)
Quarter: 2021Q3

REPORT INFORMATION
  Report Type: Spontaneous
  Country: US (occurrence: US)
  Receive Date: 20210825
  Receipt Date: 20210825
  Transmission Date: 20211014
  Serious: Yes (Life-Threatening, Disabling, Other)
  Sender: FDA-Public Use
  Company Number: US-BIOGEN-2021BI01040755

PATIENT
  Age: 77 Year
  Sex: Female

DRUGS (2)
  1. COVID?19 VACCINE NOS. [Suspect]
     Active Substance: COVID-19 VACCINE NOS
     Indication: COVID-19 PROPHYLAXIS
     Route: 065
  2. TECFIDERA [Suspect]
     Active Substance: DIMETHYL FUMARATE
     Indication: MULTIPLE SCLEROSIS
     Route: 065
     Dates: start: 20030421

REACTIONS (5)
  - Stress [Unknown]
  - Asthenia [Unknown]
  - COVID-19 [Unknown]
  - Vaccination complication [Unknown]
  - Pneumonia [Unknown]

NARRATIVE: CASE EVENT DATE: 202010
